FAERS Safety Report 6139890-3 (Version None)
Quarter: 2009Q1

REPORT INFORMATION
  Report Type: 
  Country: None (occurrence: None)
  Receive Date: 20090324
  Receipt Date: 20090320
  Transmission Date: 20090719
  Serious: Yes (Life-Threatening, Hospitalization)
  Sender: FDA-Public Use
  Company Number: ADE2009-0495

PATIENT
  Age: 61 Year
  Sex: Male
  Weight: 67 kg

DRUGS (3)
  1. SERTRALINE HCL [Suspect]
     Dosage: 3.1G, ONE TIME, ORAL
     Route: 048
  2. QUETIAPINE [Suspect]
     Dosage: 4.3G, ONE TIME, ORAL
     Route: 048
  3. BENZODIAZEPINE [Suspect]

REACTIONS (7)
  - BLOOD GLUCOSE INCREASED [None]
  - BODY TEMPERATURE DECREASED [None]
  - COMA [None]
  - HYPOTENSION [None]
  - OVERDOSE [None]
  - POISONING DELIBERATE [None]
  - UNRESPONSIVE TO STIMULI [None]
